FAERS Safety Report 6867687-5 (Version None)
Quarter: 2010Q3

REPORT INFORMATION
  Report Type: 
  Country: None (occurrence: None)
  Receive Date: 20100722
  Receipt Date: 20100413
  Transmission Date: 20110219
  Serious: No
  Sender: FDA-Public Use
  Company Number: US-BAUSCH-2010BL001996

PATIENT
  Age: 26 Year
  Sex: Female

DRUGS (3)
  1. OPCON-A [Suspect]
     Indication: EYE ALLERGY
     Route: 047
     Dates: start: 20100413
  2. OPCON-A [Suspect]
     Indication: DRY EYE
     Route: 047
     Dates: start: 20100413
  3. OPCON-A [Suspect]
     Indication: OCULAR HYPERAEMIA
     Route: 047
     Dates: start: 20100413

REACTIONS (2)
  - INSTILLATION SITE PAIN [None]
  - LACRIMATION INCREASED [None]
